FAERS Safety Report 14753375 (Version 1)
Quarter: 2018Q2

REPORT INFORMATION
  Report Type: Spontaneous
  Country: CH (occurrence: CH)
  Receive Date: 20180412
  Receipt Date: 20180412
  Transmission Date: 20180711
  Serious: Yes (Hospitalization, Other)
  Sender: FDA-Public Use
  Company Number: CH-GILEAD-2018-0332186

PATIENT
  Age: 40 Year
  Sex: Male

DRUGS (1)
  1. VIREAD [Suspect]
     Active Substance: TENOFOVIR DISOPROXIL FUMARATE
     Indication: HEPATITIS B
     Dosage: UNK
     Route: 065
     Dates: start: 2017

REACTIONS (4)
  - Hepatic cirrhosis [Unknown]
  - Drug ineffective [Unknown]
  - Hepatitis B DNA increased [Unknown]
  - Bleeding varicose vein [Unknown]
